FAERS Safety Report 14599319 (Version 3)
Quarter: 2018Q1

REPORT INFORMATION
  Report Type: Spontaneous
  Country: BG (occurrence: BG)
  Receive Date: 20180305
  Receipt Date: 20180330
  Transmission Date: 20180509
  Serious: Yes (Hospitalization, Other)
  Sender: FDA-Public Use
  Company Number: BG-JNJFOC-20180301794

PATIENT
  Age: 70 Year
  Sex: Female

DRUGS (6)
  1. SIOFOR [Concomitant]
     Active Substance: METFORMIN HYDROCHLORIDE
     Route: 065
  2. FINLEPSIN [Concomitant]
     Active Substance: CARBAMAZEPINE
     Route: 065
  3. XARELTO [Suspect]
     Active Substance: RIVAROXABAN
     Indication: ATRIAL FIBRILLATION
     Route: 048
  4. DIRONORM [Concomitant]
     Route: 065
  5. TRIFAS [Concomitant]
     Route: 065
  6. SERMION [Concomitant]
     Active Substance: NICERGOLINE
     Route: 065

REACTIONS (8)
  - Atrial fibrillation [Recovering/Resolving]
  - General physical health deterioration [Recovering/Resolving]
  - Mobility decreased [Recovering/Resolving]
  - Cardiac failure chronic [Recovering/Resolving]
  - Tachypnoea [Recovering/Resolving]
  - Oedema peripheral [Recovering/Resolving]
  - Fatigue [Recovering/Resolving]
  - Dyspnoea at rest [Recovering/Resolving]
